FAERS Safety Report 24142240 (Version 2)
Quarter: 2024Q3

REPORT INFORMATION
  Report Type: Spontaneous
  Country: CA (occurrence: CA)
  Receive Date: 20240726
  Receipt Date: 20240904
  Transmission Date: 20241016
  Serious: No
  Sender: UCB
  Company Number: CA-UCBSA-2024037790

PATIENT
  Age: 7 Decade
  Sex: Female

DRUGS (1)
  1. BIMZELX [Suspect]
     Active Substance: BIMEKIZUMAB-BKZX
     Indication: Psoriasis
     Dosage: UNK

REACTIONS (2)
  - Self-injurious ideation [Unknown]
  - Mood altered [Unknown]
